FAERS Safety Report 4906340-1 (Version None)
Quarter: 2006Q1

REPORT INFORMATION
  Report Type: 
  Country: None (occurrence: None)
  Receive Date: 20060209
  Receipt Date: 20060201
  Transmission Date: 20060701
  Serious: Yes (Death, Hospitalization)
  Sender: FDA-Public Use
  Company Number: CA-AMGEN-US167171

PATIENT
  Sex: Male

DRUGS (22)
  1. ARANESP [Suspect]
     Indication: DIALYSIS
     Dates: start: 20030401
  2. SENSIPAR [Concomitant]
     Indication: HYPERPARATHYROIDISM SECONDARY
     Route: 048
     Dates: start: 20041129
  3. RENAGEL [Concomitant]
  4. BASALJEL [Concomitant]
     Dates: start: 20020401
  5. CALCIUM GLUCONATE [Concomitant]
  6. ATACAND [Concomitant]
  7. MONOPRIL [Concomitant]
  8. ADALAT [Concomitant]
  9. CATAPRES [Concomitant]
  10. IMDUR [Concomitant]
     Dates: start: 20041101
  11. PLAVIX [Concomitant]
  12. ENTROPHEN [Concomitant]
  13. DURAGESIC-100 [Concomitant]
     Dates: start: 20050701
  14. DILAUDID [Concomitant]
  15. ALLOPURINOL [Concomitant]
  16. QUININE [Concomitant]
  17. PANTOPRAZOLE SODIUM [Concomitant]
  18. RESTORIL [Concomitant]
  19. COLACE [Concomitant]
  20. SENOKOT [Concomitant]
  21. LACTULOSE [Concomitant]
  22. VENOFER [Concomitant]

REACTIONS (2)
  - PERIPHERAL REVASCULARISATION [None]
  - POST PROCEDURAL COMPLICATION [None]
